FAERS Safety Report 19117467 (Version 8)
Quarter: 2021Q3

REPORT INFORMATION
  Report Type: Report from Study
  Country: IT (occurrence: IT)
  Receive Date: 20210409
  Receipt Date: 20210924
  Transmission Date: 20211014
  Serious: Yes (Life-Threatening, Other)
  Sender: FDA-Public Use
  Company Number: IT-BIOGEN-2021BI00999009

PATIENT
  Age: 35 Year
  Sex: Female
  Weight: 64 kg

DRUGS (4)
  1. TYSABRI [Suspect]
     Active Substance: NATALIZUMAB
     Dosage: AFTER 24NOV2020, THE SUBJECT STARTED COMMERCIAL TYSABRI, WITH THE LAST DOSE RECEIVED ON 16FEB2021.
     Route: 042
     Dates: start: 20190708, end: 20201124
  2. TYSABRI [Suspect]
     Active Substance: NATALIZUMAB
     Indication: RELAPSING-REMITTING MULTIPLE SCLEROSIS
     Dosage: AFTER 24NOV2020, THE SUBJECT STARTED COMMERCIAL TYSABRI, WITH THE LAST DOSE RECEIVED ON 16FEB2021.
     Route: 042
     Dates: start: 20180521
  3. PAROXETINE. [Concomitant]
     Active Substance: PAROXETINE
     Route: 048
     Dates: start: 2009
  4. COMBINATION OF VITAMIN C, ZINC, SILICON [Concomitant]
     Dosage: 1 CAPSULE
     Route: 048
     Dates: start: 20191007

REACTIONS (1)
  - Progressive multifocal leukoencephalopathy [Not Recovered/Not Resolved]

NARRATIVE: CASE EVENT DATE: 20210331
